FAERS Safety Report 7384164-6 (Version None)
Quarter: 2011Q1

REPORT INFORMATION
  Report Type: 
  Country: None (occurrence: None)
  Receive Date: 20110330
  Receipt Date: 20110322
  Transmission Date: 20110831
  Serious: Yes (Death)
  Sender: FDA-Public Use
  Company Number: B0707794A

PATIENT
  Age: 57 Year
  Sex: Male

DRUGS (4)
  1. TACROLIMUS [Concomitant]
  2. BUMETANIDE [Concomitant]
  3. OMEPRAZOLE [Concomitant]
  4. AUGMENTIN '125' [Suspect]
     Route: 042
     Dates: start: 20100807, end: 20100807

REACTIONS (1)
  - HYPERTENSION [None]
